FAERS Safety Report 6134272-2 (Version None)
Quarter: 2009Q1

REPORT INFORMATION
  Report Type: 
  Country: None (occurrence: None)
  Receive Date: 20090325
  Receipt Date: 20090310
  Transmission Date: 20090719
  Serious: Yes (Hospitalization)
  Sender: FDA-Public Use
  Company Number: 2009S1004768

PATIENT
  Age: 95 Year
  Sex: Male
  Weight: 60 kg

DRUGS (7)
  1. CARVEDILOL [Suspect]
     Indication: HYPERTENSION
     Dosage: 6.25 MG;ORAL
     Route: 048
     Dates: start: 20000101, end: 20081201
  2. DIGITOXIN INJ [Suspect]
     Indication: CARDIAC FAILURE CHRONIC
     Dosage: .01 MG;ORAL
     Route: 048
     Dates: start: 20000101, end: 20081201
  3. GLIBENCLAMIDE [Concomitant]
  4. RAMIPRIL [Concomitant]
  5. TORASEMIDE [Concomitant]
  6. ASPIRIN [Concomitant]
  7. FUROSEMIDE [Concomitant]

REACTIONS (15)
  - ANAEMIA [None]
  - BRADYARRHYTHMIA [None]
  - CARDIAC FAILURE [None]
  - DIVERTICULUM [None]
  - DUODENAL ULCER [None]
  - DYSPNOEA [None]
  - HAEMORRHAGE [None]
  - HEPATIC FUNCTION ABNORMAL [None]
  - LACERATION [None]
  - LARGE INTESTINAL HAEMORRHAGE [None]
  - MITRAL VALVE INCOMPETENCE [None]
  - MULTI-ORGAN FAILURE [None]
  - PULMONARY HYPERTENSION [None]
  - RECTAL HAEMORRHAGE [None]
  - VERTIGO [None]
